FAERS Safety Report 17079980 (Version 1)
Quarter: 2019Q4

REPORT INFORMATION
  Report Type: Spontaneous
  Country: US (occurrence: US)
  Receive Date: 20191127
  Receipt Date: 20191127
  Transmission Date: 20200122
  Serious: No
  Sender: FDA-Public Use
  Company Number: US-AUROBINDO-AUR-APL-2019-038394

PATIENT

DRUGS (2)
  1. GABAPENTIN TABLETS USP 600MG [Suspect]
     Active Substance: GABAPENTIN
     Indication: NERVE INJURY
     Dosage: 3600 MILLIGRAM, A DAY (2 600 MG TABLETS 3 TIMES A DAY)
     Route: 048
  2. GABAPENTIN TABLETS USP 600MG [Suspect]
     Active Substance: GABAPENTIN
     Indication: PAIN

REACTIONS (6)
  - Feeling abnormal [Unknown]
  - Product dose omission [Unknown]
  - Thinking abnormal [Unknown]
  - Drug ineffective [Unknown]
  - Condition aggravated [Unknown]
  - Disturbance in attention [Unknown]
